FAERS Safety Report 7460542-1 (Version None)
Quarter: 2011Q2

REPORT INFORMATION
  Report Type: 
  Country: None (occurrence: None)
  Receive Date: 20110505
  Receipt Date: 20110503
  Transmission Date: 20111010
  Serious: Yes (Life-Threatening)
  Sender: FDA-Public Use
  Company Number: PHHY2011GB14979

PATIENT
  Age: 60 Year
  Sex: Female
  Weight: 90 kg

DRUGS (6)
  1. BENDROFLUAZIDE [Concomitant]
  2. AMOXICILLIN AND CLAVULANATE POTASSIUM [Suspect]
     Dosage: 1.2 G, DAILY
     Route: 042
     Dates: start: 20110128
  3. MIDAZOLAM [Concomitant]
  4. PROPOFOL [Concomitant]
  5. FENTANYL [Concomitant]
  6. RAMIPRIL [Concomitant]

REACTIONS (2)
  - BRONCHOSPASM [None]
  - HYPOTENSION [None]
